FAERS Safety Report 9753629 (Version 1)
Quarter: 2013Q4

REPORT INFORMATION
  Report Type: Report from Study
  Country: BR (occurrence: BR)
  Receive Date: 20131213
  Receipt Date: 20131213
  Transmission Date: 20140711
  Serious: Yes (Other)
  Sender: FDA-Public Use
  Company Number: PHHY2013BR146140

PATIENT
  Sex: Female
  Weight: 58 kg

DRUGS (4)
  1. DIOVAN AMLO FIX [Suspect]
     Indication: HYPERTENSION
     Dosage: 1 DF, (160/5 MG) A DAY
     Route: 048
     Dates: end: 2013
  2. DIOVAN AMLO FIX [Suspect]
     Dosage: 1 DF, (160/5 MG)
     Route: 048
     Dates: start: 2013
  3. PURAN T4 [Concomitant]
     Indication: THYROID DISORDER
     Dosage: 125 UG, UNK
  4. ATENOLOL [Concomitant]
     Indication: TACHYCARDIA
     Dosage: 25 MG, UNK
     Dates: start: 2009

REACTIONS (2)
  - Sjogren^s syndrome [Recovering/Resolving]
  - Hypertension [Recovering/Resolving]
